FAERS Safety Report 15763793 (Version 3)
Quarter: 2019Q4

REPORT INFORMATION
  Report Type: Report from Study
  Country: DE (occurrence: DE)
  Receive Date: 20181227
  Receipt Date: 20191009
  Transmission Date: 20200122
  Serious: Yes (Other)
  Sender: FDA-Public Use
  Company Number: DE-BRISTOL-MYERS SQUIBB COMPANY-BMS-2018-120978

PATIENT
  Age: 66 Year
  Sex: Female
  Weight: 62 kg

DRUGS (2)
  1. APIXABAN [Suspect]
     Active Substance: APIXABAN
     Indication: PRODUCT USED FOR UNKNOWN INDICATION
     Dosage: 2.5 MILLIGRAM
     Route: 048
  2. APIXABAN [Suspect]
     Active Substance: APIXABAN
     Indication: EMBOLISM VENOUS
     Dosage: 10 MILLIGRAM, BID
     Route: 048
     Dates: start: 20170519

REACTIONS (4)
  - Deep vein thrombosis [Unknown]
  - Haematoma [Unknown]
  - Fall [Unknown]
  - Joint swelling [Unknown]

NARRATIVE: CASE EVENT DATE: 20181009
